FAERS Safety Report 10765085 (Version 1)
Quarter: 2015Q1

REPORT INFORMATION
  Report Type: Report from Study
  Country: CA (occurrence: CA)
  Receive Date: 20150205
  Receipt Date: 20150205
  Transmission Date: 20150721
  Serious: Yes (Other)
  Sender: FDA-Public Use
  Company Number: CA-AMGEN-CANSL2015009221

PATIENT
  Age: 77 Year
  Sex: Female

DRUGS (3)
  1. VITAMINS                           /00067501/ [Concomitant]
     Active Substance: VITAMINS
     Dosage: UNK
  2. PROLIA [Suspect]
     Active Substance: DENOSUMAB
     Indication: OSTEOPOROSIS POSTMENOPAUSAL
     Dosage: 60 MG, Q6MO
     Route: 058
     Dates: start: 20110516
  3. COVERSYL                           /00790702/ [Concomitant]
     Active Substance: PERINDOPRIL
     Dosage: 2 MG, UNK

REACTIONS (1)
  - Diverticulitis [Unknown]
